FAERS Safety Report 23580558 (Version 2)
Quarter: 2024Q1

REPORT INFORMATION
  Report Type: Report from Study
  Country: GB (occurrence: GB)
  Receive Date: 20240229
  Receipt Date: 20240325
  Transmission Date: 20240410
  Serious: Yes (Other)
  Sender: FDA-Public Use
  Company Number: GB-SANDOZ-SDZ2024GB019196

PATIENT
  Sex: Female

DRUGS (1)
  1. HYRIMOZ [Suspect]
     Active Substance: ADALIMUMAB-ADAZ
     Indication: Iridocyclitis
     Dosage: 40 MG EOW
     Route: 058

REACTIONS (8)
  - Pulmonary congestion [Unknown]
  - Weight increased [Recovering/Resolving]
  - Sensitive skin [Unknown]
  - Sinus pain [Unknown]
  - Pruritus [Unknown]
  - Cough [Unknown]
  - Arthralgia [Recovering/Resolving]
  - Dry skin [Recovering/Resolving]
